FAERS Safety Report 10238976 (Version 7)
Quarter: 2015Q1

REPORT INFORMATION
  Report Type: Spontaneous
  Country: US (occurrence: US)
  Receive Date: 20140616
  Receipt Date: 20150219
  Transmission Date: 20150720
  Serious: Yes (Other)
  Sender: FDA-Public Use
  Company Number: US-009507513-1406USA006221

PATIENT
  Sex: Male
  Weight: 117.91 kg

DRUGS (2)
  1. LEXAPRO [Suspect]
     Active Substance: ESCITALOPRAM OXALATE
     Dosage: UNK
     Dates: end: 20120131
  2. PROPECIA [Suspect]
     Active Substance: FINASTERIDE
     Indication: ALOPECIA
     Dosage: 1 MG, QD
     Route: 048
     Dates: start: 20070220, end: 20120901

REACTIONS (34)
  - Attention deficit/hyperactivity disorder [Unknown]
  - Osteoarthritis [Unknown]
  - Hypertriglyceridaemia [Unknown]
  - Pruritus [Unknown]
  - Obesity [Unknown]
  - Orchitis [Unknown]
  - Carpal tunnel syndrome [Unknown]
  - Plantar fascial fibromatosis [Unknown]
  - Arthralgia [Unknown]
  - Loss of libido [Unknown]
  - Insomnia [Not Recovered/Not Resolved]
  - Migraine [Unknown]
  - Headache [Unknown]
  - Essential hypertension [Unknown]
  - Panic disorder with agoraphobia [Unknown]
  - Skin texture abnormal [Unknown]
  - Sexual dysfunction [Not Recovered/Not Resolved]
  - Rash [Unknown]
  - Sexually transmitted disease [Unknown]
  - Lyme disease [Unknown]
  - Tachycardia [Unknown]
  - Cholecystectomy [Unknown]
  - Generalised anxiety disorder [Not Recovered/Not Resolved]
  - Major depression [Not Recovered/Not Resolved]
  - Conjunctivitis [Unknown]
  - Epididymitis [Unknown]
  - Hair disorder [Unknown]
  - Acute sinusitis [Unknown]
  - Liver function test abnormal [Unknown]
  - Palpitations [Unknown]
  - Erectile dysfunction [Not Recovered/Not Resolved]
  - Dermatitis contact [Unknown]
  - Diarrhoea [Unknown]
  - Vitamin D deficiency [Unknown]

NARRATIVE: CASE EVENT DATE: 20070529
